FAERS Safety Report 11224295 (Version 3)
Quarter: 2015Q3

REPORT INFORMATION
  Report Type: Spontaneous
  Country: IT (occurrence: IT)
  Receive Date: 20150629
  Receipt Date: 20150930
  Transmission Date: 20151125
  Serious: Yes (Hospitalization)
  Sender: FDA-Public Use
  Company Number: IT-JNJFOC-20150615409

PATIENT
  Age: 26 Year
  Sex: Female

DRUGS (3)
  1. FENTANYL. [Suspect]
     Active Substance: FENTANYL
     Indication: PRODUCT USED FOR UNKNOWN INDICATION
     Route: 048
     Dates: start: 20150601, end: 20150601
  2. OXYCODONE HCL [Suspect]
     Active Substance: OXYCODONE HYDROCHLORIDE
     Indication: SPINAL PAIN
     Route: 048
     Dates: start: 20150601, end: 20150601
  3. TRAMADOL HYDROCHLORIDE. [Suspect]
     Active Substance: TRAMADOL HYDROCHLORIDE
     Indication: SPINAL PAIN
     Route: 048
     Dates: start: 20150601, end: 20150601

REACTIONS (4)
  - Suicide attempt [Recovering/Resolving]
  - Drug abuse [Recovering/Resolving]
  - Headache [Recovering/Resolving]
  - Vomiting [Recovering/Resolving]

NARRATIVE: CASE EVENT DATE: 20150601
